FAERS Safety Report 5334865-6 (Version None)
Quarter: 2007Q2

REPORT INFORMATION
  Report Type: 
  Country: None (occurrence: None)
  Receive Date: 20070308
  Receipt Date: 20061212
  Transmission Date: 20071010
  Serious: No
  Sender: FDA-Public Use
  Company Number: 2006-BP-12212BP

PATIENT
  Age: 75 Year
  Sex: Female

DRUGS (14)
  1. SPIRIVA [Suspect]
     Indication: BRONCHIECTASIS
     Dosage: 18 MG (18 MG, 1 IN 1 D), IH
     Route: 055
     Dates: start: 20060401
  2. SPIRIVA [Suspect]
     Indication: CHRONIC OBSTRUCTIVE PULMONARY DISEASE
     Dosage: 18 MG (18 MG, 1 IN 1 D), IH
     Route: 055
     Dates: start: 20060401
  3. RUTUXIN (ALL OTHER THERAPEUTIC PRODUCTS) [Suspect]
     Indication: EXTRANODAL MARGINAL ZONE B-CELL LYMPHOMA (MALT TYPE)
     Dates: start: 20060101, end: 20060401
  4. FOSAMAX [Concomitant]
  5. PREMARIN [Concomitant]
  6. MULTI-VITAMINS [Concomitant]
  7. ATIVAN [Concomitant]
  8. COENZYME Q10 [Concomitant]
  9. CALCIUM (CALCUM) [Concomitant]
  10. SLO-MAG (MAGNESIUM CHLORIDE ANHYDROUS) [Concomitant]
  11. MSN (METHYLSULFONYLMETHANE) [Concomitant]
  12. FOLIC ACID [Concomitant]
  13. VITAMIN B6 [Concomitant]
  14. VITAMIN B12 [Concomitant]

REACTIONS (4)
  - CELLULITIS [None]
  - GLOSSITIS [None]
  - ORAL CANDIDIASIS [None]
  - TONGUE GEOGRAPHIC [None]
